FAERS Safety Report 17484158 (Version 1)
Quarter: 2020Q1

REPORT INFORMATION
  Report Type: Spontaneous
  Country: US (occurrence: US)
  Receive Date: 20200302
  Receipt Date: 20200302
  Transmission Date: 20200409
  Serious: Yes (Death, Other)
  Sender: FDA-Public Use
  Company Number: US-GLAXOSMITHKLINE-US2020GSK032322

PATIENT
  Age: 86 Year
  Sex: Female

DRUGS (4)
  1. CEFUROXIME. [Suspect]
     Active Substance: CEFUROXIME
     Indication: SINUSITIS
     Dosage: UNK
  2. AMLODIPINE [Concomitant]
     Active Substance: AMLODIPINE BESYLATE
     Indication: HYPERTENSION
     Dosage: UNK
  3. ROSUVASTATIN. [Concomitant]
     Active Substance: ROSUVASTATIN
     Indication: HYPERLIPIDAEMIA
     Dosage: UNK
  4. ATORVASTATIN [Concomitant]
     Active Substance: ATORVASTATIN
     Indication: HYPERLIPIDAEMIA
     Dosage: 80 MG

REACTIONS (11)
  - Thrombotic thrombocytopenic purpura [Unknown]
  - Microangiopathic haemolytic anaemia [Unknown]
  - Neurological decompensation [Unknown]
  - Cardiac arrest [Fatal]
  - Contusion [Unknown]
  - Depressed level of consciousness [Unknown]
  - Chest discomfort [Unknown]
  - Hypoaesthesia [Unknown]
  - Thrombocytopenia [Unknown]
  - Ocular icterus [Unknown]
  - Acute myocardial infarction [Unknown]
